FAERS Safety Report 7204781-3 (Version None)
Quarter: 2010Q4

REPORT INFORMATION
  Report Type: 
  Country: None (occurrence: None)
  Receive Date: 20101230
  Receipt Date: 20101220
  Transmission Date: 20110411
  Serious: Yes (Other)
  Sender: FDA-Public Use
  Company Number: PL-WATSON-2010-16524

PATIENT
  Age: 35 Year
  Sex: Female

DRUGS (6)
  1. PREDNISONE [Suspect]
     Indication: RETINITIS
     Dosage: 10 MG, DAILY
  2. PREDNISONE [Suspect]
     Indication: VITRITIS
     Dosage: 30 MG, DAILY
  3. VIREAD                             /01490001/ [Suspect]
     Indication: HIV INFECTION
     Dosage: UNK
  4. LAMIVUDINE [Suspect]
     Indication: HIV INFECTION
     Dosage: UNK
  5. STOCRIN [Suspect]
     Indication: HIV INFECTION
     Dosage: UNK
  6. TELZIR                             /01644801/ [Suspect]
     Indication: HIV INFECTION
     Dosage: UNK

REACTIONS (3)
  - IMMUNE RECONSTITUTION SYNDROME [None]
  - RETINITIS [None]
  - VITRITIS [None]
